FAERS Safety Report 6551599-0 (Version None)
Quarter: 2010Q1

REPORT INFORMATION
  Report Type: 
  Country: None (occurrence: None)
  Receive Date: 20100126
  Receipt Date: 20100119
  Transmission Date: 20100710
  Serious: Yes (Hospitalization)
  Sender: FDA-Public Use
  Company Number: JP-PERRIGO-10JP006399

PATIENT
  Age: 73 Year
  Sex: Male

DRUGS (6)
  1. ACETAMINOPHEN SLOW RELEASE [Suspect]
     Indication: FATIGUE
     Dosage: UNK
     Route: 048
     Dates: start: 20070601, end: 20070701
  2. ACETAMINOPHEN SLOW RELEASE [Suspect]
     Indication: ERYTHEMA
     Dosage: UNK
     Route: 048
     Dates: start: 20070701
  3. ASPIRIN [Concomitant]
     Indication: FATIGUE
     Dosage: UNK
     Route: 048
     Dates: start: 20070601, end: 20070701
  4. ASPIRIN [Concomitant]
     Indication: ERYTHEMA
  5. CEFACLOR [Concomitant]
     Indication: FATIGUE
     Dosage: UNK
     Route: 048
     Dates: start: 20070601, end: 20070701
  6. CEFACLOR [Concomitant]
     Indication: ERYTHEMA

REACTIONS (1)
  - AGRANULOCYTOSIS [None]
